FAERS Safety Report 16416042 (Version 5)
Quarter: 2020Q3

REPORT INFORMATION
  Report Type: Report from Study
  Country: AT (occurrence: AT)
  Receive Date: 20190611
  Receipt Date: 20200803
  Transmission Date: 20201102
  Serious: Yes (Hospitalization)
  Sender: FDA-Public Use
  Company Number: AT-JNJFOC-20190612166

PATIENT
  Age: 6 Decade
  Sex: Female
  Weight: 67 kg

DRUGS (17)
  1. OSPEN                              /00001801/ [Concomitant]
     Indication: ERYSIPELAS
     Route: 065
     Dates: start: 20181202, end: 20181202
  2. UNASYN [Concomitant]
     Active Substance: AMPICILLIN SODIUM\SULBACTAM SODIUM
     Indication: ERYSIPELAS
     Route: 065
     Dates: start: 20181202, end: 20181209
  3. FOLIC ACID. [Concomitant]
     Active Substance: FOLIC ACID
     Indication: PSORIATIC ARTHROPATHY
     Route: 048
  4. METHOTREXATE. [Concomitant]
     Active Substance: METHOTREXATE
     Indication: PSORIATIC ARTHROPATHY
     Route: 048
  5. EBETREXAT                          /00113801/ [Concomitant]
     Active Substance: METHOTREXATE SODIUM
     Indication: PSORIATIC ARTHROPATHY
     Dates: start: 201811, end: 20181202
  6. FOLSAN [Concomitant]
     Active Substance: FOLIC ACID
     Indication: PROPHYLAXIS
  7. TERBINAFINE. [Concomitant]
     Active Substance: TERBINAFINE
     Indication: ERYSIPELAS
     Route: 065
     Dates: start: 20181206
  8. NASENSALBE RUEDI [Concomitant]
     Route: 062
     Dates: start: 20181202
  9. PERFALGAN [Concomitant]
     Active Substance: ACETAMINOPHEN
     Indication: PAIN
  10. VALACICLOVIR [Concomitant]
     Active Substance: VALACYCLOVIR HYDROCHLORIDE
     Indication: ORAL HERPES
     Route: 065
     Dates: start: 20181209, end: 20181212
  11. EUCERIN                            /01160201/ [Concomitant]
     Active Substance: LANOLIN\MINERAL OIL\PETROLATUM
     Indication: ERYSIPELAS
     Route: 065
     Dates: start: 20181203
  12. PERFALGAN [Concomitant]
     Active Substance: ACETAMINOPHEN
     Indication: ERYSIPELAS
     Route: 065
     Dates: start: 20181202, end: 20181202
  13. SIMPONI [Suspect]
     Active Substance: GOLIMUMAB
     Indication: PSORIATIC ARTHROPATHY
     Route: 058
     Dates: start: 20170303
  14. FOLSAN [Concomitant]
     Active Substance: FOLIC ACID
     Indication: HYPOVITAMINOSIS
     Route: 065
  15. ENOXAPARIN [Concomitant]
     Active Substance: ENOXAPARIN
     Indication: THROMBOSIS
     Route: 065
     Dates: start: 20181202, end: 20181208
  16. OSPEXIN [Concomitant]
     Indication: ERYSIPELAS
     Route: 065
     Dates: start: 20181210, end: 20181214
  17. ENOXAPARIN [Concomitant]
     Active Substance: ENOXAPARIN
     Indication: PROPHYLAXIS

REACTIONS (4)
  - Oral herpes [Recovered/Resolved]
  - Skin erosion [Recovered/Resolved]
  - Erysipelas [Recovered/Resolved]
  - Injury [Recovered/Resolved]

NARRATIVE: CASE EVENT DATE: 20181202
